FAERS Safety Report 12935817 (Version 2)
Quarter: 2017Q4

REPORT INFORMATION
  Report Type: Spontaneous
  Country: US (occurrence: US)
  Receive Date: 20161114
  Receipt Date: 20171115
  Transmission Date: 20180320
  Serious: Yes (Hospitalization)
  Sender: FDA-Public Use
  Company Number: US-BAUSCH-BL-2016-027500

PATIENT
  Age: 63 Year
  Sex: Male

DRUGS (1)
  1. XENAZINE [Suspect]
     Active Substance: TETRABENAZINE
     Indication: HUNTINGTON^S DISEASE
     Route: 048
     Dates: start: 20161107

REACTIONS (2)
  - Prescribed overdose [Unknown]
  - Hospitalisation [Unknown]

NARRATIVE: CASE EVENT DATE: 20161107
